FAERS Safety Report 10395711 (Version 1)
Quarter: 2014Q1

REPORT INFORMATION
  Report Type: Spontaneous
  Country: US (occurrence: None)
  Receive Date: 20130318
  Receipt Date: 20130318
  Transmission Date: 20141002
  Serious: No
  Sender: FDA-Public Use
  Company Number: 2012PROUSA02208

PATIENT
  Age: 74 Year
  Sex: Male
  Weight: 118.39 kg

DRUGS (1)
  1. PROVENGE (SIPULEUCEL-T) SUSPENSION, 250ML [Suspect]
     Indication: PROSTATE CANCER METASTATIC
     Dosage: 250 ML, SINGLE, INTRAVENOUS
     Route: 042
     Dates: start: 20121012, end: 20121012

REACTIONS (1)
  - Device related infection [None]
